FAERS Safety Report 9659647 (Version 5)
Quarter: 2014Q1

REPORT INFORMATION
  Report Type: Report from Study
  Country: US (occurrence: US)
  Receive Date: 20131031
  Receipt Date: 20140116
  Transmission Date: 20141002
  Serious: Yes (Hospitalization)
  Sender: FDA-Public Use
  Company Number: US-JNJFOC-20131015641

PATIENT
  Age: 17 Year
  Sex: Female
  Weight: 56.2 kg

DRUGS (7)
  1. REMICADE [Suspect]
     Indication: INFLAMMATORY BOWEL DISEASE
     Route: 042
     Dates: start: 20110317
  2. REMICADE [Suspect]
     Indication: INFLAMMATORY BOWEL DISEASE
     Route: 042
     Dates: start: 20121214, end: 20130418
  3. 5-AMINOSALICYLIC ACID [Concomitant]
     Route: 048
  4. 5-AMINOSALICYLIC ACID [Concomitant]
     Route: 054
  5. OSCAL 500 [Concomitant]
     Route: 065
  6. PREDNISONE [Concomitant]
     Route: 065
  7. HUMIRA [Concomitant]
     Route: 065
     Dates: start: 20130418

REACTIONS (1)
  - Clostridium difficile colitis [Recovered/Resolved]
